FAERS Safety Report 17287477 (Version 1)
Quarter: 2020Q1

REPORT INFORMATION
  Report Type: Spontaneous
  Country: FR (occurrence: FR)
  Receive Date: 20200120
  Receipt Date: 20200120
  Transmission Date: 20200409
  Serious: Yes (Other)
  Sender: FDA-Public Use
  Company Number: FR-TEVA-2020-FR-1169134

PATIENT
  Age: 42 Year
  Sex: Female

DRUGS (4)
  1. IBUPROFENE [Concomitant]
     Active Substance: IBUPROFEN
  2. HELICIDINE [Concomitant]
     Active Substance: ESCARGOT
  3. AMOXICILLIN. [Suspect]
     Active Substance: AMOXICILLIN
     Indication: TONSILLITIS
     Dosage: 2 G
     Route: 048
     Dates: start: 20180525, end: 20180526
  4. DOLIPRANE [Concomitant]
     Active Substance: ACETAMINOPHEN

REACTIONS (2)
  - Rash [Recovered/Resolved]
  - Angioedema [Recovered/Resolved]

NARRATIVE: CASE EVENT DATE: 20180526
